FAERS Safety Report 15583211 (Version 4)
Quarter: 2019Q4

REPORT INFORMATION
  Report Type: Other
  Country: CA (occurrence: CA)
  Receive Date: 20181105
  Receipt Date: 20191107
  Transmission Date: 20200122
  Serious: Yes (Hospitalization)
  Sender: FDA-Public Use
  Company Number: CA-HLSUS-2018-CA-001637

PATIENT
  Sex: Male

DRUGS (6)
  1. CLOZAPINE. [Suspect]
     Active Substance: CLOZAPINE
     Indication: PSYCHOTIC DISORDER
     Dosage: 350MG 1 EVERY 1 DAY
     Route: 065
     Dates: start: 200404, end: 200611
  2. SAPHRIS [Concomitant]
     Active Substance: ASENAPINE MALEATE
  3. CLOMIPRAMINE [Concomitant]
     Active Substance: CLOMIPRAMINE
     Dates: start: 200703, end: 200903
  4. FLUPENTIXOL [Concomitant]
     Active Substance: FLUPENTIXOL
  5. FLUOXETINE [Concomitant]
     Active Substance: FLUOXETINE HYDROCHLORIDE
  6. GABAPENTIN. [Concomitant]
     Active Substance: GABAPENTIN
     Dosage: 1800 MG
     Route: 065

REACTIONS (20)
  - Euphoric mood [Unknown]
  - Leukopenia [Unknown]
  - Antipsychotic drug level below therapeutic [Unknown]
  - Therapeutic product effect variable [Unknown]
  - Drug ineffective [Unknown]
  - Obesity [Unknown]
  - Suicide attempt [Unknown]
  - Skin laceration [Unknown]
  - Hypertension [Unknown]
  - Therapeutic product effect incomplete [Unknown]
  - Increased appetite [Unknown]
  - Toxicity to various agents [Unknown]
  - Weight increased [Unknown]
  - Prescribed overdose [Unknown]
  - Product use in unapproved indication [Unknown]
  - Akathisia [Unknown]
  - Dyslipidaemia [Unknown]
  - Disinhibition [Unknown]
  - Obsessive-compulsive disorder [Unknown]
  - Aggression [Unknown]
